FAERS Safety Report 14035563 (Version 1)
Quarter: 2017Q4

REPORT INFORMATION
  Report Type: Spontaneous
  Country: US (occurrence: US)
  Receive Date: 20171003
  Receipt Date: 20171003
  Transmission Date: 20180321
  Serious: No
  Sender: FDA-Public Use
  Company Number: US-009507513-1710USA000557

PATIENT
  Age: 58 Year
  Sex: Female

DRUGS (1)
  1. BRIDION [Suspect]
     Active Substance: SUGAMMADEX
     Indication: APPENDICECTOMY
     Dosage: WAS ADMINISTERED BRIDION DURING A LAPAROSCOPIC APPENDECTOMY
     Dates: start: 20170809, end: 20170809

REACTIONS (1)
  - Bronchospasm [Unknown]

NARRATIVE: CASE EVENT DATE: 20170809
